FAERS Safety Report 6484790-2 (Version None)
Quarter: 2009Q4

REPORT INFORMATION
  Report Type: 
  Country: None (occurrence: None)
  Receive Date: 20091209
  Receipt Date: 20081211
  Transmission Date: 20100525
  Serious: No
  Sender: FDA-Public Use
  Company Number: A0760205A

PATIENT
  Age: 63 Year
  Sex: Male

DRUGS (5)
  1. AVANDAMET [Suspect]
     Dosage: 1TAB TWICE PER DAY
     Route: 048
     Dates: start: 20081105
  2. GLIPIZIDE [Concomitant]
  3. HYDROCHLOROTHIAZIDE [Concomitant]
  4. LISINOPRIL [Concomitant]
  5. LIPITOR [Concomitant]

REACTIONS (2)
  - ABDOMINAL PAIN UPPER [None]
  - MEDICATION RESIDUE [None]
